FAERS Safety Report 7264683-3 (Version None)
Quarter: 2011Q1

REPORT INFORMATION
  Report Type: 
  Country: None (occurrence: None)
  Receive Date: 20110131
  Receipt Date: 20110126
  Transmission Date: 20110831
  Serious: No
  Sender: FDA-Public Use
  Company Number: US-PFIZER INC-2011018764

PATIENT
  Sex: Female

DRUGS (2)
  1. LYRICA [Suspect]
     Indication: CERVICAL SPINAL STENOSIS
     Dosage: 100 MG, 3X/DAY
  2. LYRICA [Suspect]
     Indication: SKIN BURNING SENSATION

REACTIONS (1)
  - DRUG INEFFECTIVE [None]
